FAERS Safety Report 6836378-9 (Version None)
Quarter: 2010Q3

REPORT INFORMATION
  Report Type: 
  Country: None (occurrence: None)
  Receive Date: 20100713
  Receipt Date: 20100630
  Transmission Date: 20110219
  Serious: Yes (Other)
  Sender: FDA-Public Use
  Company Number: US-ELI_LILLY_AND_COMPANY-US200909004209

PATIENT
  Sex: Female

DRUGS (8)
  1. STRATTERA [Suspect]
     Indication: ATTENTION DEFICIT/HYPERACTIVITY DISORDER
     Dosage: 40 MG, DAILY (1/D)
     Route: 065
     Dates: start: 20010101, end: 20040101
  2. STRATTERA [Suspect]
     Dosage: 80 MG, DAILY (1/D)
     Route: 065
     Dates: start: 20040101, end: 20040101
  3. STRATTERA [Suspect]
     Dosage: 40 MG, DAILY (1/D)
     Route: 065
     Dates: end: 20070101
  4. STRATTERA [Suspect]
     Dosage: 40 MG, DAILY (1/D)
     Dates: start: 20070101, end: 20100624
  5. WELLBUTRIN [Concomitant]
     Indication: DEPRESSION
     Dosage: UNK, 2/D
     Route: 065
  6. KLONOPIN [Concomitant]
     Indication: ANXIETY
     Dosage: UNK, 2/D
     Route: 065
  7. REGLAN [Concomitant]
     Indication: CONSTIPATION
     Dosage: UNK, EACH EVENING
     Route: 065
  8. DIET FORMULATIONS FOR TREATMENT OF OBESITY [Concomitant]

REACTIONS (15)
  - ADVERSE DRUG REACTION [None]
  - DECREASED APPETITE [None]
  - DEPRESSED MOOD [None]
  - DEPRESSION [None]
  - DISTURBANCE IN ATTENTION [None]
  - DRUG INEFFECTIVE [None]
  - DRUG WITHDRAWAL SYNDROME [None]
  - FATIGUE [None]
  - FEELING ABNORMAL [None]
  - FEELING OF DESPAIR [None]
  - HEADACHE [None]
  - INCREASED APPETITE [None]
  - NIGHTMARE [None]
  - SUICIDAL IDEATION [None]
  - WEIGHT DECREASED [None]
